FAERS Safety Report 4706909-3 (Version None)
Quarter: 2005Q2

REPORT INFORMATION
  Report Type: 
  Country: None (occurrence: None)
  Receive Date: 20050630
  Receipt Date: 20050620
  Transmission Date: 20051028
  Serious: Yes (Life-Threatening)
  Sender: FDA-Public Use
  Company Number: MK200506-0281-1

PATIENT
  Age: 61 Year
  Sex: Female

DRUGS (5)
  1. TRAMADOL HYDROCHLORIDE TABS 50 MG [Suspect]
     Indication: PAIN
     Dosage: 50 MG, Q D
  2. TRAMADOL HYDROCHLORIDE TABS 50 MG [Suspect]
     Indication: SCIATICA
     Dosage: 50 MG, Q D
  3. ENALAPRIL MALEATE [Concomitant]
  4. DILTIAZEM [Concomitant]
  5. BUDESONIDE [Concomitant]

REACTIONS (2)
  - RESPIRATORY DISTRESS [None]
  - SWOLLEN TONGUE [None]
